FAERS Safety Report 21047230 (Version 1)
Quarter: 2022Q3

REPORT INFORMATION
  Report Type: Spontaneous
  Country: US (occurrence: None)
  Receive Date: 20220705
  Receipt Date: 20220705
  Transmission Date: 20221027
  Serious: No
  Sender: FDA-Public Use
  Company Number: None

PATIENT
  Sex: Male

DRUGS (12)
  1. INBRIJA [Suspect]
     Active Substance: LEVODOPA
     Indication: Parkinson^s disease
     Dates: start: 20220414
  2. ASPIRIN [Concomitant]
     Active Substance: ASPIRIN
  3. ATORVASTATIN [Concomitant]
     Active Substance: ATORVASTATIN
  4. AZILECT TAB [Concomitant]
  5. BENAZEPRIL TAB [Concomitant]
  6. CARB/LEVO TAB [Concomitant]
  7. CLOPIDOGREL TAB [Concomitant]
  8. KEPPRA [Concomitant]
     Active Substance: LEVETIRACETAM
  9. METOPROL SUC TAB [Concomitant]
  10. ROBAXIN INJ [Concomitant]
  11. ROPINIROLE [Concomitant]
     Active Substance: ROPINIROLE
  12. SERDQUEL [Concomitant]

REACTIONS (1)
  - Parkinsonism [None]

NARRATIVE: CASE EVENT DATE: 20220705
